FAERS Safety Report 6022508-8 (Version None)
Quarter: 2008Q4

REPORT INFORMATION
  Report Type: 
  Country: None (occurrence: None)
  Receive Date: 20081230
  Receipt Date: 20081219
  Transmission Date: 20090506
  Serious: Yes (Other)
  Sender: FDA-Public Use
  Company Number: FR-BAYER-200828594GPV

PATIENT
  Age: 46 Year
  Sex: Female
  Weight: 55 kg

DRUGS (5)
  1. MIRENA [Suspect]
     Indication: ENDOMETRIAL DISORDER
     Route: 015
     Dates: start: 20070403
  2. DAFALGAN [Concomitant]
     Indication: DRUG USE FOR UNKNOWN INDICATION
     Route: 065
  3. ANTIVITAMIN K [Concomitant]
     Indication: DRUG USE FOR UNKNOWN INDICATION
     Route: 065
  4. CONTRAST MEDIA [Concomitant]
     Indication: COMPUTERISED TOMOGRAM THORAX
     Route: 065
     Dates: start: 20080407, end: 20080407
  5. OPTIJECT 350 [Concomitant]
     Indication: COMPUTERISED TOMOGRAM ABDOMEN
     Route: 013
     Dates: start: 20080520, end: 20080520

REACTIONS (6)
  - ABDOMINAL PAIN UPPER [None]
  - ANOREXIA [None]
  - DYSPNOEA [None]
  - GASTROINTESTINAL DISORDER [None]
  - OVARIAN CYST [None]
  - PULMONARY EMBOLISM [None]
